FAERS Safety Report 16281201 (Version 1)
Quarter: 2020Q3

REPORT INFORMATION
  Report Type: Report from Study
  Country: NL (occurrence: NL)
  Receive Date: 20190507
  Receipt Date: 20190507
  Transmission Date: 20201105
  Serious: Yes (Hospitalization)
  Sender: FDA-Public Use
  Company Number: PHHO2018NL001876

PATIENT
  Age: 58 Year
  Sex: Male
  Weight: 86 kg

DRUGS (7)
  1. TRAMETINIB [Suspect]
     Active Substance: TRAMETINIB
     Indication: METASTATIC MALIGNANT MELANOMA
     Dosage: 150 MG, BID
     Route: 048
     Dates: start: 20180117
  2. AMLODIPINE [Concomitant]
     Active Substance: AMLODIPINE BESYLATE
     Indication: HYPERTENSION
     Dosage: 20 MG, QD
     Route: 048
     Dates: start: 20180123
  3. PREDNISOLON [Concomitant]
     Active Substance: PREDNISOLONE
     Indication: RASH
     Dosage: 5 MG, QD
     Route: 048
     Dates: start: 20180128
  4. TRAMETINIB [Suspect]
     Active Substance: TRAMETINIB
     Dosage: 150 MG, BID
     Route: 048
     Dates: start: 20180316, end: 20190201
  5. DABRAFENIB [Suspect]
     Active Substance: DABRAFENIB
     Indication: METASTATIC MALIGNANT MELANOMA
     Dosage: 2 MG, QD
     Route: 048
     Dates: start: 20180117
  6. DABRAFENIB [Suspect]
     Active Substance: DABRAFENIB
     Dosage: 2 MG, QD
     Route: 048
     Dates: start: 20180316, end: 20190201
  7. PDR001 [Suspect]
     Active Substance: SPARTALIZUMAB
     Indication: METASTATIC MALIGNANT MELANOMA
     Dosage: 400 MG, Q4W
     Route: 042
     Dates: start: 20180117

REACTIONS (3)
  - Pyrexia [Recovered/Resolved]
  - Pyrexia [Recovered/Resolved]
  - Pyrexia [Recovered/Resolved]

NARRATIVE: CASE EVENT DATE: 20180128
